FAERS Safety Report 15685923 (Version 1)
Quarter: 2018Q4

REPORT INFORMATION
  Report Type: Spontaneous
  Country: US (occurrence: US)
  Receive Date: 20181204
  Receipt Date: 20181204
  Transmission Date: 20190205
  Serious: No
  Sender: FDA-Public Use
  Company Number: US-SA-2018SA326257

PATIENT
  Age: 75 Year
  Sex: Male

DRUGS (1)
  1. LANTUS SOLOSTAR [Suspect]
     Active Substance: INSULIN GLARGINE
     Dosage: 15 OR 16 UNIT BEFORE BEDTIME
     Route: 065

REACTIONS (4)
  - Product use issue [Unknown]
  - Cough [Unknown]
  - Blood glucose increased [Unknown]
  - Sneezing [Unknown]
